FAERS Safety Report 13234659 (Version 1)
Quarter: 2017Q1

REPORT INFORMATION
  Report Type: Report from Study
  Country: US (occurrence: US)
  Receive Date: 20170215
  Receipt Date: 20170215
  Transmission Date: 20170428
  Serious: Yes (Other)
  Sender: FDA-Public Use
  Company Number: US-PFIZER INC-2016598406

PATIENT
  Age: 78 Year
  Sex: Female

DRUGS (1)
  1. IBRANCE [Suspect]
     Active Substance: PALBOCICLIB
     Indication: BREAST CANCER
     Dosage: 125 MG, DAILY
     Route: 048
     Dates: start: 20160815

REACTIONS (6)
  - Cough [Not Recovered/Not Resolved]
  - Alopecia [Recovering/Resolving]
  - Anxiety [Unknown]
  - Neutropenia [Unknown]
  - Hypokalaemia [Unknown]
  - Sinusitis [Unknown]
